FAERS Safety Report 6399957-1 (Version None)
Quarter: 2009Q4

REPORT INFORMATION
  Report Type: 
  Country: None (occurrence: None)
  Receive Date: 20091008
  Receipt Date: 20091008
  Transmission Date: 20100525
  Serious: Yes (Hospitalization)
  Sender: FDA-Public Use
  Company Number: None

PATIENT
  Sex: Male

DRUGS (3)
  1. PIPERACILLIN AND TAZOBACTAM [Suspect]
     Indication: CELLULITIS
     Dosage: 3.375G Q6H IV BOLUS
     Route: 040
     Dates: start: 20080819, end: 20080821
  2. VANCOMYCIN [Suspect]
     Dosage: 1.5G Q8H IV BOLUS
     Route: 040
  3. LISINOPRIL AND HYDROCHLOROTHIAZIDE [Suspect]

REACTIONS (1)
  - BLOOD CREATININE INCREASED [None]
